FAERS Safety Report 25090923 (Version 1)
Quarter: 2025Q1

REPORT INFORMATION
  Report Type: Spontaneous
  Country: AU (occurrence: AU)
  Receive Date: 20250318
  Receipt Date: 20250318
  Transmission Date: 20250409
  Serious: Yes (Hospitalization)
  Sender: WAYLIS THERAPEUTICS
  Company Number: AU-WAYLIS-2025-AU-000041

PATIENT
  Sex: Female

DRUGS (2)
  1. RABEPRAZOLE SODIUM [Suspect]
     Active Substance: RABEPRAZOLE SODIUM
     Indication: Nausea
     Route: 048
     Dates: start: 20250304, end: 20250304
  2. EPIPEN [Concomitant]
     Active Substance: EPINEPHRINE
     Route: 058

REACTIONS (2)
  - Cough [Unknown]
  - Throat tightness [Unknown]

NARRATIVE: CASE EVENT DATE: 20250304
